FAERS Safety Report 23511074 (Version 1)
Quarter: 2024Q1

REPORT INFORMATION
  Report Type: Report from Study
  Country: CN (occurrence: CN)
  Receive Date: 20240212
  Receipt Date: 20240212
  Transmission Date: 20240409
  Serious: Yes (Other)
  Sender: FDA-Public Use
  Company Number: CN-HALEON-CNCH2024APC007319

PATIENT

DRUGS (1)
  1. DICLOFENAC SODIUM [Suspect]
     Active Substance: DICLOFENAC\DICLOFENAC SODIUM
     Indication: Back pain
     Dosage: UNK
     Route: 048

REACTIONS (4)
  - Duodenal ulcer [Unknown]
  - Small intestine ulcer [Unknown]
  - Anaemia [Unknown]
  - Stenosis [Unknown]
